FAERS Safety Report 8610780-7 (Version None)
Quarter: 2012Q3

REPORT INFORMATION
  Report Type: 
  Country: None (occurrence: None)
  Receive Date: 20120822
  Receipt Date: 20120815
  Transmission Date: 20120928
  Serious: Yes (Hospitalization)
  Sender: FDA-Public Use
  Company Number: CH-JNJFOC-20120807698

PATIENT
  Age: 84 Year
  Sex: Male

DRUGS (7)
  1. CALCIMAGON D3 [Concomitant]
     Route: 048
  2. VI-DE 3 [Concomitant]
     Route: 048
  3. BISOPROLOL FUMARATE [Suspect]
     Indication: ESSENTIAL HYPERTENSION
     Route: 048
     Dates: start: 20120608
  4. RAMIPRIL [Suspect]
     Indication: ESSENTIAL HYPERTENSION
     Route: 048
  5. GALANTAMINE HYDROBROMIDE [Suspect]
     Indication: COGNITIVE DISORDER
     Route: 048
     Dates: start: 20110101
  6. SIMVASTATIN [Concomitant]
     Route: 048
  7. MARCUMAR [Concomitant]
     Route: 048

REACTIONS (5)
  - SINUS BRADYCARDIA [None]
  - ATRIOVENTRICULAR BLOCK SECOND DEGREE [None]
  - SICK SINUS SYNDROME [None]
  - DIZZINESS [None]
  - DYSPNOEA [None]
